FAERS Safety Report 20773870 (Version 1)
Quarter: 2022Q2

REPORT INFORMATION
  Report Type: Spontaneous
  Country: US (occurrence: None)
  Receive Date: 20220502
  Receipt Date: 20220502
  Transmission Date: 20220720
  Serious: No
  Sender: FDA-Public Use
  Company Number: US-FRESENIUS KABI-FK202204896

PATIENT
  Age: 64 Year
  Sex: Female

DRUGS (1)
  1. METHOTREXATE [Suspect]
     Active Substance: METHOTREXATE
     Indication: Granulomatosis with polyangiitis
     Dosage: METHOTREXATE INJECTION USP (0.4 ML (25MG) ONCE A WEEK) (NDC, LOT, WITH EXPIRY: UNKNOWN) (STRENGTH: 2
     Dates: start: 20210917

REACTIONS (1)
  - Fatigue [Not Recovered/Not Resolved]
